FAERS Safety Report 8221387-8 (Version None)
Quarter: 2012Q1

REPORT INFORMATION
  Report Type: 
  Country: None (occurrence: None)
  Receive Date: 20120320
  Receipt Date: 20120319
  Transmission Date: 20120608
  Serious: Yes (Death)
  Sender: FDA-Public Use
  Company Number: PHHY2012CH023900

PATIENT
  Sex: Male

DRUGS (3)
  1. ASPIRIN [Concomitant]
  2. ANGIOTENSIN II ANTAGONISTS [Concomitant]
  3. RASILEZ [Suspect]
     Dates: start: 20110101

REACTIONS (1)
  - ARTERIAL OCCLUSIVE DISEASE [None]
